FAERS Safety Report 8553860 (Version 4)
Quarter: 2017Q2

REPORT INFORMATION
  Report Type: Report from Study
  Country: US (occurrence: US)
  Receive Date: 20120509
  Receipt Date: 20170421
  Transmission Date: 20170830
  Serious: Yes (Death, Other)
  Sender: FDA-Public Use
  Company Number: US-ROCHE-1065431

PATIENT

DRUGS (6)
  1. RITUXIMAB [Suspect]
     Active Substance: RITUXIMAB
     Indication: NON-HODGKIN^S LYMPHOMA
     Dosage: 4-6 HOUR
     Route: 042
  2. PREDNISONE. [Suspect]
     Active Substance: PREDNISONE
     Indication: NON-HODGKIN^S LYMPHOMA
     Dosage: DAY 8-12, 29-33, 50-54, 71-75 AND 113-117
     Route: 048
  3. TOSITUMOMAB [Suspect]
     Active Substance: TOSITUMOMAB
     Indication: NON-HODGKIN^S LYMPHOMA
     Route: 042
  4. DOXORUBICIN [Suspect]
     Active Substance: DOXORUBICIN
     Indication: NON-HODGKIN^S LYMPHOMA
     Dosage: 5-20 MINUTES
     Route: 042
  5. VINCRISTINE [Suspect]
     Active Substance: VINCRISTINE
     Indication: NON-HODGKIN^S LYMPHOMA
     Dosage: 5-15 MINUTES ON DAY 8, 29, 50, 71, 92 AND 113
     Route: 042
  6. CYCLOPHOSPHAMIDE. [Suspect]
     Active Substance: CYCLOPHOSPHAMIDE
     Indication: NON-HODGKIN^S LYMPHOMA
     Dosage: 15 MINUTES
     Route: 042

REACTIONS (14)
  - Anaemia [Unknown]
  - Cardiovascular disorder [Unknown]
  - Myelodysplastic syndrome [Fatal]
  - Neutropenic infection [Fatal]
  - Respiratory failure [Fatal]
  - Gastrointestinal disorder [Unknown]
  - Fatigue [Unknown]
  - Neutropenia [Unknown]
  - Metastasis [Unknown]
  - Infection [Unknown]
  - Febrile neutropenia [Unknown]
  - Acute lymphocytic leukaemia [Fatal]
  - Thrombocytopenia [Unknown]
  - Acute myeloid leukaemia [Fatal]
